FAERS Safety Report 5102894-3 (Version None)
Quarter: 2006Q3

REPORT INFORMATION
  Report Type: 
  Country: None (occurrence: None)
  Receive Date: 20060907
  Receipt Date: 20060821
  Transmission Date: 20061208
  Serious: Yes (Hospitalization)
  Sender: FDA-Public Use
  Company Number: 2006RR-03536

PATIENT
  Age: 70 Year

DRUGS (6)
  1. CLARITHROMYCIN [Suspect]
     Dosage: 250 MG, BID, ORAL
     Route: 048
     Dates: start: 20060619, end: 20060623
  2. CALCICHEW D3 [Concomitant]
  3. ACETAMINOPHEN W/ CODEINE [Concomitant]
  4. COMBIVENT [Concomitant]
  5. PREDNISOLONE [Concomitant]
  6. RISERDRONATE [Concomitant]

REACTIONS (1)
  - PURPURA [None]
